FAERS Safety Report 6238888-4 (Version None)
Quarter: 2009Q2

REPORT INFORMATION
  Report Type: 
  Country: None (occurrence: None)
  Receive Date: 20090622
  Receipt Date: 20090615
  Transmission Date: 20091009
  Serious: Yes (Hospitalization)
  Sender: FDA-Public Use
  Company Number: US-JNJFOC-20090504977

PATIENT
  Sex: Male
  Weight: 80.29 kg

DRUGS (5)
  1. INFLIXIMAB [Suspect]
     Route: 042
  2. INFLIXIMAB [Suspect]
     Indication: PSORIASIS
     Route: 042
  3. FLAGYL [Concomitant]
  4. TOPROL-XL [Concomitant]
  5. ASPIRIN [Concomitant]

REACTIONS (1)
  - DIVERTICULITIS [None]
